FAERS Safety Report 9928532 (Version 4)
Quarter: 2016Q2

REPORT INFORMATION
  Report Type: Spontaneous
  Country: US (occurrence: US)
  Receive Date: 20140227
  Receipt Date: 20160414
  Transmission Date: 20160815
  Serious: Yes (Hospitalization, Other)
  Sender: FDA-Public Use
  Company Number: US-BAYER-2014-030047

PATIENT
  Age: 21 Year
  Sex: Female
  Weight: 53.52 kg

DRUGS (3)
  1. TORADOL [Concomitant]
     Active Substance: KETOROLAC TROMETHAMINE
     Dosage: 30 MG/ML, UNK
     Route: 030
  2. DOXYCYCLINE. [Concomitant]
     Active Substance: DOXYCYCLINE
     Dosage: 100 MG, BID
     Route: 048
     Dates: start: 201102
  3. MIRENA [Suspect]
     Active Substance: LEVONORGESTREL
     Indication: CONTRACEPTION
     Dosage: 20 MCG/24HR, CONT
     Route: 015
     Dates: start: 20090519, end: 20110217

REACTIONS (15)
  - Emotional distress [None]
  - Anxiety [None]
  - Scar [None]
  - Device difficult to use [None]
  - Depression [None]
  - Injury [None]
  - Mental disorder [None]
  - Medical device discomfort [None]
  - Abdominal pain lower [None]
  - Pelvic pain [None]
  - Genital haemorrhage [None]
  - Fear [None]
  - Internal injury [None]
  - Uterine perforation [None]
  - Device breakage [None]

NARRATIVE: CASE EVENT DATE: 201009
